FAERS Safety Report 4281393-5 (Version None)
Quarter: 2004Q1

REPORT INFORMATION
  Report Type: 
  Country: None (occurrence: None)
  Receive Date: 20040109
  Receipt Date: 20030717
  Transmission Date: 20041129
  Serious: No
  Sender: FDA-Public Use
  Company Number: US042903

PATIENT
  Age: 56 Year
  Sex: Female

DRUGS (5)
  1. KINERET [Suspect]
     Indication: RHEUMATOID ARTHRITIS
     Dosage: 100 MG, DAILY, SC
     Route: 058
     Dates: start: 19991110
  2. KINERET [Suspect]
  3. IBUPROFEN [Concomitant]
  4. VALSARTAN [Concomitant]
  5. HYDROCHLOROTHIAZIDE [Concomitant]

REACTIONS (3)
  - PHARYNGITIS [None]
  - RHEUMATOID NODULE [None]
  - SACRAL PAIN [None]
